FAERS Safety Report 15488258 (Version 1)
Quarter: 2018Q4

REPORT INFORMATION
  Report Type: Spontaneous
  Country: US (occurrence: US)
  Receive Date: 20181011
  Receipt Date: 20181011
  Transmission Date: 20190205
  Serious: No
  Sender: FDA-Public Use
  Company Number: US-RISING PHARMACEUTICALS, INC.-2017RIS00338

PATIENT
  Age: 67 Year
  Sex: Female
  Weight: 52.15 kg

DRUGS (1)
  1. PROCTOZONE-HC [Suspect]
     Active Substance: HYDROCORTISONE
     Indication: HAEMORRHOIDS
     Dosage: 2-3X/DAY
     Route: 054
     Dates: start: 20171017, end: 201710

REACTIONS (3)
  - Drug ineffective for unapproved indication [Recovered/Resolved]
  - Incorrect route of product administration [Unknown]
  - Haemorrhoids [Not Recovered/Not Resolved]

NARRATIVE: CASE EVENT DATE: 201710
